FAERS Safety Report 6135381-4 (Version None)
Quarter: 2009Q1

REPORT INFORMATION
  Report Type: 
  Country: None (occurrence: None)
  Receive Date: 20090327
  Receipt Date: 20090318
  Transmission Date: 20090719
  Serious: Yes (Other)
  Sender: FDA-Public Use
  Company Number: FI-JNJFOC-20090304498

PATIENT
  Age: 7 Year
  Sex: Female

DRUGS (2)
  1. INFLIXIMAB [Suspect]
     Dosage: THIRD INFUSION
     Route: 042
  2. INFLIXIMAB [Suspect]
     Indication: JUVENILE ARTHRITIS
     Dosage: TWO INFUSIONS ON UNKNOWN DATES
     Route: 042

REACTIONS (3)
  - HYPERSENSITIVITY [None]
  - HYPOTENSION [None]
  - INFUSION RELATED REACTION [None]
